FAERS Safety Report 8169637-0 (Version None)
Quarter: 2012Q1

REPORT INFORMATION
  Report Type: 
  Country: None (occurrence: None)
  Receive Date: 20120228
  Receipt Date: 20120223
  Transmission Date: 20120608
  Serious: No
  Sender: FDA-Public Use
  Company Number: US-PFIZER INC-2012048752

PATIENT
  Sex: Male
  Weight: 92.063 kg

DRUGS (5)
  1. VIAGRA [Suspect]
     Indication: ERECTILE DYSFUNCTION
     Dosage: 100 MG, AS NEEDED
     Route: 048
     Dates: end: 20110101
  2. SILDENAFIL [Suspect]
     Indication: ERECTILE DYSFUNCTION
     Dosage: 100 MG, AS NEEDED
     Route: 048
     Dates: start: 20110101
  3. COUMADIN [Concomitant]
     Dosage: 6.5 MG ON SUNDAY AND 6.5MG ON WEDNESDAY AND 6 MG ON OTHER DAYS
  4. ASPIRIN [Concomitant]
     Dosage: 81 MG, UNK
  5. FISH OIL [Concomitant]
     Dosage: UNK, 2X/DAY

REACTIONS (5)
  - BODY TEMPERATURE INCREASED [None]
  - FLUSHING [None]
  - HEADACHE [None]
  - DRUG EFFECT DELAYED [None]
  - VISUAL BRIGHTNESS [None]
